FAERS Safety Report 6760677-2 (Version None)
Quarter: 2010Q2

REPORT INFORMATION
  Report Type: 
  Country: None (occurrence: None)
  Receive Date: 20100608
  Receipt Date: 20100527
  Transmission Date: 20101027
  Serious: Yes (Hospitalization)
  Sender: FDA-Public Use
  Company Number: FR-PFIZER INC-2010066795

PATIENT
  Age: 42 Year
  Sex: Female

DRUGS (10)
  1. TRIFLUCAN [Suspect]
     Indication: OESOPHAGEAL CANDIDIASIS
     Dosage: 200 MG, 1X/DAY
     Route: 048
     Dates: start: 20091209, end: 20100119
  2. IMUREL [Suspect]
     Indication: POLYMYOSITIS
     Dosage: 100 MG, 1X/DAY
     Route: 048
     Dates: start: 20091001, end: 20100202
  3. CYMEVAN [Suspect]
     Indication: CYTOMEGALOVIRUS OESOPHAGITIS
     Dosage: UNK MG, 2X/DAY
     Route: 042
     Dates: start: 20091125, end: 20091215
  4. CYMEVAN [Suspect]
     Dosage: 300 MG, 2X/DAY
     Route: 042
     Dates: start: 20100108, end: 20100119
  5. VALGANCICLOVIR [Suspect]
     Indication: CYTOMEGALOVIRUS OESOPHAGITIS
     Dosage: 900 MG, 1X/DAY
     Route: 048
     Dates: start: 20100119, end: 20100125
  6. POSACONAZOLE [Suspect]
     Indication: OESOPHAGEAL CANDIDIASIS
     Dosage: 200 MG DAILY
     Route: 048
     Dates: start: 20100119, end: 20100125
  7. TEGELINE [Concomitant]
     Indication: POLYMYOSITIS
  8. CARDENSIEL [Concomitant]
  9. LEXOMIL [Concomitant]
  10. CORTANCYL [Concomitant]
     Indication: POLYMYOSITIS
     Dosage: UNK

REACTIONS (3)
  - ANAEMIA [None]
  - NEUTROPENIA [None]
  - THROMBOCYTOPENIA [None]
